FAERS Safety Report 18560044 (Version 1)
Quarter: 2020Q4

REPORT INFORMATION
  Report Type: Spontaneous
  Country: IT (occurrence: IT)
  Receive Date: 20201130
  Receipt Date: 20201130
  Transmission Date: 20210114
  Serious: Yes (Hospitalization)
  Sender: FDA-Public Use
  Company Number: IT-TEVA-2020-IT-1852987

PATIENT
  Age: 1 Year
  Sex: Male
  Weight: 10 kg

DRUGS (12)
  1. HOLOXAN [Concomitant]
     Active Substance: IFOSFAMIDE
     Indication: EWING^S SARCOMA
     Dosage: UNIT DOSE : 432 MG
     Route: 042
     Dates: start: 20200422, end: 20200427
  2. GLYCEROL [Concomitant]
     Active Substance: GLYCERIN
     Indication: CONSTIPATION
     Dosage: UNIT DOSE : 1 DOSAGE FORMS
     Dates: start: 20200502, end: 20200502
  3. ETOPOSIDE. [Concomitant]
     Active Substance: ETOPOSIDE
     Indication: EWING^S SARCOMA
     Dosage: UNIT DOSE : 33.99 MG
     Route: 042
     Dates: start: 20200422, end: 20200427
  4. VINCRISTINE [Suspect]
     Active Substance: VINCRISTINE
     Indication: EWING^S SARCOMA
     Dosage: UNIT DOSE : 0.72 MG
     Route: 042
     Dates: start: 20200508, end: 20200510
  5. MYELOSTIM [Suspect]
     Active Substance: LENOGRASTIM
     Indication: NEUTROPENIA
     Dosage: UNIT DOSE : 0.2 ML
     Route: 058
     Dates: start: 20200510
  6. ZOFRAN [Concomitant]
     Active Substance: ONDANSETRON HYDROCHLORIDE
     Indication: PREMEDICATION
     Dosage: UNIT DOSE : 9 MG
     Route: 042
     Dates: start: 20200422, end: 20200427
  7. ENDOXAN BAXTER [Suspect]
     Active Substance: CYCLOPHOSPHAMIDE
     Indication: EWING^S SARCOMA
     Dosage: UNIT DOSE : 376 MG
     Route: 042
     Dates: start: 20200508, end: 20200510
  8. DECADRON [Concomitant]
     Active Substance: DEXAMETHASONE
     Indication: PREMEDICATION
     Dosage: UNIT DOSE : 2 MG
     Route: 042
     Dates: start: 20200422, end: 20200422
  9. DOXORUBICIN HYDROCHLORIDE. [Suspect]
     Active Substance: DOXORUBICIN HYDROCHLORIDE
     Indication: EWING^S SARCOMA
     Dosage: UNIT DOSE : 18 MG
     Route: 042
     Dates: start: 20200508, end: 20200510
  10. NORMASE [Concomitant]
     Indication: CONSTIPATION
     Route: 048
     Dates: start: 20200502
  11. MYELOSTIM [Suspect]
     Active Substance: LENOGRASTIM
     Indication: NEUTROPENIA
     Dosage: UNIT DOSE : 0.2 ML
     Route: 058
     Dates: start: 20200430, end: 20200505
  12. TRIMETON [Concomitant]
     Active Substance: CHLORPHENIRAMINE MALEATE
     Indication: PREMEDICATION
     Dosage: UNIT DOSE : 4 MG
     Dates: start: 20200422, end: 20200427

REACTIONS (1)
  - Mucosal inflammation [Recovering/Resolving]

NARRATIVE: CASE EVENT DATE: 20200518
